FAERS Safety Report 7244240-5 (Version None)
Quarter: 2011Q1

REPORT INFORMATION
  Report Type: 
  Country: None (occurrence: None)
  Receive Date: 20110125
  Receipt Date: 20101208
  Transmission Date: 20110831
  Serious: Yes (Other)
  Sender: FDA-Public Use
  Company Number: US-BAYER-2010-003492

PATIENT
  Sex: Female

DRUGS (1)
  1. BETASERON [Suspect]
     Indication: MULTIPLE SCLEROSIS
     Dosage: 8 MIU, QOD
     Route: 058
     Dates: start: 19940606, end: 20100608

REACTIONS (4)
  - ASPIRATION [None]
  - LIVER DISORDER [None]
  - WHITE BLOOD CELL COUNT ABNORMAL [None]
  - PNEUMONIA [None]
